FAERS Safety Report 8138395-8 (Version None)
Quarter: 2012Q1

REPORT INFORMATION
  Report Type: 
  Country: None (occurrence: None)
  Receive Date: 20120215
  Receipt Date: 20120201
  Transmission Date: 20120608
  Serious: Yes (Life-Threatening, Hospitalization)
  Sender: FDA-Public Use
  Company Number: CA-ROCHE-1036422

PATIENT
  Age: 78 Year
  Sex: Male
  Weight: 94.5 kg

DRUGS (5)
  1. VITAMIN D [Concomitant]
     Dates: start: 20111114
  2. ASPIRIN [Concomitant]
     Dates: start: 20110704
  3. HYDROCHLOROTHIAZIDE [Concomitant]
     Dates: start: 20100701
  4. VEMURAFENIB [Suspect]
     Indication: METASTATIC MALIGNANT MELANOMA
     Route: 048
     Dates: start: 20111017
  5. ATENOLOL [Concomitant]
     Dates: start: 20110101

REACTIONS (1)
  - CONVULSION [None]
